FAERS Safety Report 9919282 (Version 2)
Quarter: 2014Q1

REPORT INFORMATION
  Report Type: Report from Study
  Country: CZ (occurrence: CZ)
  Receive Date: 20140224
  Receipt Date: 20140312
  Transmission Date: 20141002
  Serious: Yes (Other)
  Sender: FDA-Public Use
  Company Number: CZ-JNJFOC-20140109776

PATIENT
  Age: 50 Year
  Sex: Male
  Weight: 111 kg

DRUGS (4)
  1. STELARA [Suspect]
     Indication: PSORIASIS
     Route: 058
     Dates: start: 20130715
  2. STELARA [Suspect]
     Indication: PSORIASIS
     Route: 058
     Dates: start: 20131007
  3. STELARA [Suspect]
     Indication: PSORIASIS
     Route: 058
     Dates: end: 20140110
  4. STELARA [Suspect]
     Indication: PSORIASIS
     Route: 058
     Dates: start: 20120521, end: 20130715

REACTIONS (4)
  - Demyelination [Not Recovered/Not Resolved]
  - VIIth nerve paralysis [Recovered/Resolved]
  - Sinusitis [Recovering/Resolving]
  - Rhinitis [Recovering/Resolving]
